FAERS Safety Report 6011814-9 (Version None)
Quarter: 2008Q4

REPORT INFORMATION
  Report Type: 
  Country: None (occurrence: None)
  Receive Date: 20081218
  Receipt Date: 20080909
  Transmission Date: 20090506
  Serious: No
  Sender: FDA-Public Use
  Company Number: US-ABBOTT-08P-163-0475398-00

PATIENT
  Sex: Female
  Weight: 99.88 kg

DRUGS (2)
  1. MERIDIA [Suspect]
     Indication: WEIGHT CONTROL
     Dosage: ONCE
     Route: 048
     Dates: start: 20080908, end: 20080909
  2. METFORMIN HCL [Concomitant]
     Indication: POLYCYSTIC OVARIES
     Dosage: 2-500MG TABS IN AM/2-500MG TABS IN PM
     Route: 048

REACTIONS (3)
  - BLOOD PRESSURE INCREASED [None]
  - HALLUCINATION [None]
  - PALPITATIONS [None]
